FAERS Safety Report 8395012-X (Version None)
Quarter: 2012Q1

REPORT INFORMATION
  Report Type: 
  Country: None (occurrence: None)
  Receive Date: 20120323
  Receipt Date: 20110321
  Transmission Date: 20120608
  Serious: Yes (Hospitalization, Other)
  Sender: FDA-Public Use
  Company Number: 163-21880-11032464

PATIENT
  Age: 67 Year
  Sex: Male

DRUGS (5)
  1. VELCADE [Concomitant]
  2. DEXAMETHASONE [Concomitant]
  3. VORINOSTAT (VORINOSTAT) [Concomitant]
  4. REVLIMID [Suspect]
     Indication: MULTIPLE MYELOMA
     Dosage: 5 MG, QHS, PO ; 15 MG, DAYS 1-14 Q 21, PO
     Route: 048
     Dates: start: 20090522
  5. REVLIMID [Suspect]
     Indication: MULTIPLE MYELOMA
     Dosage: 5 MG, QHS, PO ; 15 MG, DAYS 1-14 Q 21, PO
     Route: 048
     Dates: start: 20101215

REACTIONS (4)
  - MYELOMA RECURRENCE [None]
  - PLASMACYTOMA [None]
  - FEBRILE NEUTROPENIA [None]
  - PNEUMONIA [None]
